FAERS Safety Report 8356787-9 (Version None)
Quarter: 2012Q2

REPORT INFORMATION
  Report Type: 
  Country: None (occurrence: None)
  Receive Date: 20120511
  Receipt Date: 20120511
  Transmission Date: 20120825
  Serious: Yes (Other)
  Sender: FDA-Public Use
  Company Number: None

PATIENT
  Age: 48 Year
  Sex: Male
  Weight: 114.3065 kg

DRUGS (5)
  1. ISENTRESS [Suspect]
     Indication: HIV INFECTION
     Dosage: 400 MG BID ORAL
     Route: 048
     Dates: start: 20090909, end: 20111223
  2. HYDROCHLOROTHIAZIDE [Concomitant]
  3. GABAPENTIN [Concomitant]
  4. FISH OIL [Concomitant]
  5. TRUVADA [Suspect]
     Indication: HIV INFECTION
     Dosage: 500 MG QD ORAL
     Route: 048
     Dates: start: 20090109, end: 20111223

REACTIONS (5)
  - PULMONARY EMBOLISM [None]
  - HODGKIN'S DISEASE [None]
  - CHOLECYSTITIS ACUTE [None]
  - SEPSIS [None]
  - TACHYCARDIA [None]
